FAERS Safety Report 22525100 (Version 2)
Quarter: 2023Q2

REPORT INFORMATION
  Report Type: Spontaneous
  Country: GB (occurrence: GB)
  Receive Date: 20230606
  Receipt Date: 20230607
  Transmission Date: 20230722
  Serious: Yes (Other)
  Sender: FDA-Public Use
  Company Number: GB-GILEAD-2023-0625168

PATIENT
  Sex: Male

DRUGS (4)
  1. TENOFOVIR DISOPROXIL [Suspect]
     Active Substance: TENOFOVIR DISOPROXIL
     Indication: HIV infection
     Dosage: UNK UNK, ONCE A DAY
     Route: 048
     Dates: end: 2013
  2. EFAVIRENZ [Suspect]
     Active Substance: EFAVIRENZ
     Indication: HIV infection
     Dosage: UNK UNK, ONCE A DAY
     Route: 048
     Dates: end: 2013
  3. EMTRICITABINE [Suspect]
     Active Substance: EMTRICITABINE
     Indication: HIV infection
     Dosage: UNK UNK, ONCE A DAY
     Route: 048
     Dates: end: 2013
  4. EMTRICITABINE\RILPIVIRINE\TENOFOVIR DISOPROXIL FUMARATE [Suspect]
     Active Substance: EMTRICITABINE\RILPIVIRINE\TENOFOVIR DISOPROXIL FUMARATE
     Indication: HIV infection
     Dosage: UNK UNK, ONCE A DAY
     Route: 048
     Dates: start: 2013

REACTIONS (4)
  - Diabetes mellitus [Not Recovered/Not Resolved]
  - Insomnia [Recovered/Resolved]
  - Agitation [Unknown]
  - Weight increased [Unknown]
